FAERS Safety Report 9444053 (Version 1)
Quarter: 2013Q3

REPORT INFORMATION
  Report Type: Spontaneous
  Country: US (occurrence: None)
  Receive Date: 20130806
  Receipt Date: 20130806
  Transmission Date: 20140515
  Serious: No
  Sender: FDA-Public Use
  Company Number: None

PATIENT
  Age: 42 Year
  Sex: Female

DRUGS (1)
  1. POLYETHYLENE GLYCOL [Suspect]
     Indication: CONSTIPATION
     Dosage: 17G DAILY BY MOUTH
     Route: 048
     Dates: start: 20130729, end: 20130730

REACTIONS (3)
  - Incorrect dose administered [None]
  - Medical device complication [None]
  - Medication error [None]
